FAERS Safety Report 25019538 (Version 2)
Quarter: 2025Q2

REPORT INFORMATION
  Report Type: Spontaneous
  Country: US (occurrence: US)
  Receive Date: 20250227
  Receipt Date: 20250617
  Transmission Date: 20250717
  Serious: Yes (Other)
  Sender: SUNOVION
  Company Number: US-SUMITOMO PHARMA SWITZERLAND GMBH-2025SPA002180

PATIENT

DRUGS (1)
  1. MYFEMBREE [Suspect]
     Active Substance: ESTRADIOL HEMIHYDRATE\NORETHINDRONE ACETATE\RELUGOLIX
     Indication: Endometriosis
     Dosage: TAKING THE COMBINATION OF 40MG RELUGOLIX, 1MG ESTRADIOL AND 0.5 MG NORETHINDRONE ACETATE
     Route: 048

REACTIONS (1)
  - Vaginal haemorrhage [Unknown]
